FAERS Safety Report 5933883-4 (Version None)
Quarter: 2008Q4

REPORT INFORMATION
  Report Type: 
  Country: None (occurrence: None)
  Receive Date: 20081029
  Receipt Date: 20081023
  Transmission Date: 20090506
  Serious: Yes (Other)
  Sender: FDA-Public Use
  Company Number: GB-TEVA-179377ISR

PATIENT
  Age: 56 Year
  Sex: Female

DRUGS (1)
  1. TRIMETHOPRIM [Suspect]
     Indication: URINARY TRACT INFECTION
     Route: 048
     Dates: start: 20080923, end: 20080924

REACTIONS (5)
  - CONFUSIONAL STATE [None]
  - HEPATIC FUNCTION ABNORMAL [None]
  - HEPATITIS [None]
  - JAUNDICE [None]
  - NAUSEA [None]
